FAERS Safety Report 6184611-1 (Version None)
Quarter: 2009Q2

REPORT INFORMATION
  Report Type: 
  Country: None (occurrence: None)
  Receive Date: 20090508
  Receipt Date: 20090506
  Transmission Date: 20091009
  Serious: Yes (Hospitalization)
  Sender: FDA-Public Use
  Company Number: PHHO2006SE12603

PATIENT
  Sex: Male
  Weight: 76.5 kg

DRUGS (14)
  1. CIBADREX T29368+ [Suspect]
     Indication: HYPERTENSION
     Dosage: LEVEL 1
     Route: 048
     Dates: start: 20040421, end: 20040518
  2. CIBADREX T29368+ [Suspect]
     Dosage: LEVEL 2
     Route: 048
     Dates: start: 20040519, end: 20040615
  3. CIBADREX T29368+ [Suspect]
     Dosage: LEVEL 3
     Route: 048
     Dates: start: 20040616
  4. ALFADIL [Suspect]
     Indication: HYPERTENSION
     Dosage: 8 MG
     Dates: start: 20041018
  5. SALURES-K [Suspect]
  6. SELOKEN ZOC [Concomitant]
     Dosage: 100 MG, UNK
  7. METOPROLOL [Concomitant]
     Indication: HYPERTENSION
     Dosage: 100 MG, QD
     Dates: start: 20040709
  8. TROMBYL [Concomitant]
  9. SIMVASTATIN [Concomitant]
  10. IMDUR [Concomitant]
  11. LUNELAX [Concomitant]
  12. RANITIDINE [Concomitant]
  13. GAVISCON [Concomitant]
  14. PULMICORT-100 [Concomitant]

REACTIONS (1)
  - SYNCOPE [None]
